FAERS Safety Report 20896467 (Version 1)
Quarter: 2022Q2

REPORT INFORMATION
  Report Type: Spontaneous
  Country: CA (occurrence: CA)
  Receive Date: 20220531
  Receipt Date: 20220531
  Transmission Date: 20220721
  Serious: Yes (Other)
  Sender: FDA-Public Use
  Company Number: CA-NAPPMUNDI-GBR-2022-0098431

PATIENT
  Age: 46 Year
  Sex: Male
  Weight: 76 kg

DRUGS (2)
  1. OXYCODONE HYDROCHLORIDE [Suspect]
     Active Substance: OXYCODONE HYDROCHLORIDE
     Indication: Product used for unknown indication
     Dosage: UNK
     Route: 065
  2. REMICADE [Suspect]
     Active Substance: INFLIXIMAB
     Indication: Crohn^s disease
     Dosage: 500 MILLIGRAM, 1 EVERY 8 WEEKS
     Route: 042

REACTIONS (4)
  - Anal fistula infection [Recovered/Resolved]
  - Suicide attempt [Recovered/Resolved]
  - Drug withdrawal syndrome [Recovered/Resolved]
  - Treatment noncompliance [Recovered/Resolved]
